FAERS Safety Report 15793380 (Version 1)
Quarter: 2019Q1

REPORT INFORMATION
  Report Type: Spontaneous
  Country: US (occurrence: US)
  Receive Date: 20190107
  Receipt Date: 20190107
  Transmission Date: 20190417
  Serious: No
  Sender: FDA-Public Use
  Company Number: US-ACLARIS THERAPEUTICS-2018US012140

PATIENT
  Age: 64 Year
  Sex: Female

DRUGS (1)
  1. ESKATA [Suspect]
     Active Substance: HYDROGEN PEROXIDE
     Indication: SEBORRHOEIC KERATOSIS
     Dosage: UNK
     Route: 061
     Dates: start: 20181126

REACTIONS (6)
  - Application site inflammation [Not Recovered/Not Resolved]
  - Application site erythema [Not Recovered/Not Resolved]
  - Application site discomfort [Not Recovered/Not Resolved]
  - Scab [Not Recovered/Not Resolved]
  - Application site haemorrhage [Recovered/Resolved]
  - Application site pain [Not Recovered/Not Resolved]

NARRATIVE: CASE EVENT DATE: 20181126
